FAERS Safety Report 5149153-0 (Version None)
Quarter: 2006Q4

REPORT INFORMATION
  Report Type: 
  Country: None (occurrence: None)
  Receive Date: 20061113
  Receipt Date: 20060816
  Transmission Date: 20070319
  Serious: No
  Sender: FDA-Public Use
  Company Number: US-GLAXOSMITHKLINE-A0616938A

PATIENT
  Age: 56 Year
  Sex: Male

DRUGS (8)
  1. COREG [Suspect]
     Dosage: 6.25MG THREE TIMES PER DAY
     Route: 048
     Dates: start: 20051201
  2. ALTACE [Concomitant]
  3. LIPITOR [Concomitant]
  4. DIGOXIN [Concomitant]
  5. DOXYCYL [Concomitant]
  6. WARFARIN SODIUM [Concomitant]
  7. PREVACID [Concomitant]
  8. VIAGRA [Concomitant]

REACTIONS (1)
  - BLOOD PRESSURE INCREASED [None]
